FAERS Safety Report 19013355 (Version 1)
Quarter: 2021Q1

REPORT INFORMATION
  Report Type: Spontaneous
  Country: IN (occurrence: IN)
  Receive Date: 20210316
  Receipt Date: 20210316
  Transmission Date: 20210420
  Serious: Yes (Hospitalization)
  Sender: FDA-Public Use
  Company Number: IN-MYLANLABS-2021M1015309

PATIENT
  Age: 51 Year
  Sex: Male

DRUGS (2)
  1. TACROLIMUS. [Suspect]
     Active Substance: TACROLIMUS
     Indication: IMMUNOSUPPRESSANT DRUG THERAPY
     Dosage: UNK
     Route: 065
  2. MYCOPHENOLATE MOFETIL. [Suspect]
     Active Substance: MYCOPHENOLATE MOFETIL
     Indication: IMMUNOSUPPRESSANT DRUG THERAPY
     Dosage: UNK
     Route: 065

REACTIONS (7)
  - Dyslipidaemia [Recovering/Resolving]
  - Type 2 diabetes mellitus [Recovered/Resolved]
  - Weight increased [Recovered/Resolved]
  - Metabolic syndrome [Recovering/Resolving]
  - Hypertension [Recovered/Resolved]
  - Hepatic steatosis [Recovering/Resolving]
  - Obesity [Recovered/Resolved]
